FAERS Safety Report 11272303 (Version 2)
Quarter: 2015Q3

REPORT INFORMATION
  Report Type: Spontaneous
  Country: US (occurrence: US)
  Receive Date: 20150715
  Receipt Date: 20150807
  Transmission Date: 20151125
  Serious: Yes (Hospitalization)
  Sender: FDA-Public Use
  Company Number: US-ROCHE-1607089

PATIENT
  Age: 47 Year
  Sex: Female

DRUGS (2)
  1. BENADRYL [Concomitant]
     Active Substance: DIPHENHYDRAMINE HYDROCHLORIDE
  2. XOLAIR [Suspect]
     Active Substance: OMALIZUMAB
     Indication: URTICARIA
     Route: 058
     Dates: start: 20150513, end: 20150701

REACTIONS (7)
  - Arthralgia [Unknown]
  - Paraesthesia oral [Unknown]
  - Choking sensation [Unknown]
  - Pain in extremity [Unknown]
  - Dyspnoea [Unknown]
  - Throat irritation [Unknown]
  - Myalgia [Unknown]

NARRATIVE: CASE EVENT DATE: 20150701
